FAERS Safety Report 9069862 (Version 1)
Quarter: 2013Q1

REPORT INFORMATION
  Report Type: Report from Study
  Country: US (occurrence: US)
  Receive Date: 20130129
  Receipt Date: 20130129
  Transmission Date: 20140127
  Serious: No
  Sender: FDA-Public Use
  Company Number: US-ABBOTT-12P-163-0938965-00

PATIENT
  Sex: Female

DRUGS (2)
  1. HUMIRA 40 MG/0.8 ML PEN [Suspect]
     Indication: RHEUMATOID ARTHRITIS
     Dates: start: 20120502, end: 20120502
  2. HUMIRA 40 MG/0.8 ML PEN [Suspect]
     Dates: start: 20120516, end: 20120516

REACTIONS (3)
  - Poor quality drug administered [Recovered/Resolved]
  - Drug ineffective [Not Recovered/Not Resolved]
  - Incorrect storage of drug [Unknown]
